FAERS Safety Report 23803963 (Version 2)
Quarter: 2024Q2

REPORT INFORMATION
  Report Type: Spontaneous
  Country: PT (occurrence: PT)
  Receive Date: 20240501
  Receipt Date: 20240507
  Transmission Date: 20240716
  Serious: Yes (Other)
  Sender: FDA-Public Use
  Company Number: PT-002147023-NVSC2024PT077527

PATIENT
  Age: 63 Year

DRUGS (6)
  1. DASATINIB [Suspect]
     Active Substance: DASATINIB
     Indication: Chronic myeloid leukaemia
     Dosage: THIRD LINE TREATMENT
     Route: 065
  2. IMATINIB [Suspect]
     Active Substance: IMATINIB
     Indication: Chronic myeloid leukaemia
     Dosage: FIRST LINE TREATMENT
     Route: 065
  3. NILOTINIB [Suspect]
     Active Substance: NILOTINIB
     Indication: Chronic myeloid leukaemia
     Dosage: FOURTH-LINE TREATMENT
     Route: 065
  4. BOSUTINIB [Suspect]
     Active Substance: BOSUTINIB
     Indication: Chronic myeloid leukaemia
     Dosage: SECOND-LINE TREATMENT
     Route: 065
  5. ASCIMINIB [Suspect]
     Active Substance: ASCIMINIB
     Indication: Chronic myeloid leukaemia
     Dosage: 80 MILLIGRAM, QD (40 MG, BID,6TH LINE TREATMENT)
     Route: 065
  6. PONATINIB [Suspect]
     Active Substance: PONATINIB
     Indication: Chronic myeloid leukaemia
     Dosage: FIFTH LINE TREATMENT
     Route: 065

REACTIONS (9)
  - Pancreatitis [Unknown]
  - Neutropenia [Unknown]
  - Lipase increased [Unknown]
  - Fluid retention [Unknown]
  - Myalgia [Unknown]
  - Rash [Unknown]
  - Mouth ulceration [Unknown]
  - Asthenia [Unknown]
  - Treatment failure [Unknown]
